FAERS Safety Report 7203655-1 (Version None)
Quarter: 2010Q4

REPORT INFORMATION
  Report Type: 
  Country: None (occurrence: None)
  Receive Date: 20101228
  Receipt Date: 20101228
  Transmission Date: 20110411
  Serious: Yes (Hospitalization, Other)
  Sender: FDA-Public Use
  Company Number: None

PATIENT
  Age: 13 Year
  Sex: Female
  Weight: 40.8237 kg

DRUGS (3)
  1. BUPROPION HCL [Suspect]
     Indication: ANXIETY
     Dosage: 450 MG DAILY PO
     Route: 048
     Dates: start: 20100410, end: 20101222
  2. BUPROPION HCL [Suspect]
     Indication: DEPRESSION
     Dosage: 450 MG DAILY PO
     Route: 048
     Dates: start: 20100410, end: 20101222
  3. MIRTAZAPINE [Concomitant]

REACTIONS (1)
  - GRAND MAL CONVULSION [None]
